FAERS Safety Report 5006909-2 (Version None)
Quarter: 2006Q1

REPORT INFORMATION
  Report Type: 
  Country: None (occurrence: None)
  Receive Date: 20060320
  Receipt Date: 20051020
  Transmission Date: 20060701
  Serious: Yes (Other)
  Sender: FDA-Public Use
  Company Number: 2005-10-1240

PATIENT
  Age: 46 Year
  Sex: Male

DRUGS (1)
  1. PEG-INTRON [Suspect]

REACTIONS (1)
  - SUICIDAL IDEATION [None]
